FAERS Safety Report 7406290-5 (Version None)
Quarter: 2011Q2

REPORT INFORMATION
  Report Type: 
  Country: None (occurrence: None)
  Receive Date: 20110401
  Receipt Date: 20110318
  Transmission Date: 20111010
  Serious: Yes (Death, Hospitalization)
  Sender: FDA-Public Use
  Company Number: 2011SP012698

PATIENT
  Age: 58 Year
  Sex: Female

DRUGS (1)
  1. TEMODAL [Suspect]
     Indication: GLIOBLASTOMA
     Dosage: 120 MG;PO
     Route: 048
     Dates: start: 20101001, end: 20101115

REACTIONS (2)
  - CHOLESTASIS [None]
  - HEPATITIS [None]
